FAERS Safety Report 20292238 (Version 1)
Quarter: 2022Q1

REPORT INFORMATION
  Report Type: Spontaneous
  Country: US (occurrence: US)
  Receive Date: 20220104
  Receipt Date: 20220104
  Transmission Date: 20220423
  Serious: Yes (Other)
  Sender: FDA-Public Use
  Company Number: US-COLLEGIUM PHARMACEUTICAL, INC.-2021CGM00046

PATIENT
  Age: 34 Year
  Sex: Female
  Weight: 99.773 kg

DRUGS (1)
  1. NUCYNTA [Suspect]
     Active Substance: TAPENTADOL HYDROCHLORIDE
     Indication: Procedural pain
     Dosage: 1 TABLETS, ONCE
     Route: 048
     Dates: start: 201104, end: 201104

REACTIONS (2)
  - Drug hypersensitivity [Recovered/Resolved]
  - Speech disorder [Recovered/Resolved]

NARRATIVE: CASE EVENT DATE: 20110401
